FAERS Safety Report 6071627-9 (Version None)
Quarter: 2009Q1

REPORT INFORMATION
  Report Type: 
  Country: None (occurrence: None)
  Receive Date: 20090205
  Receipt Date: 20090121
  Transmission Date: 20090719
  Serious: Yes (Hospitalization)
  Sender: FDA-Public Use
  Company Number: 014146

PATIENT
  Age: 39 Year
  Sex: Female
  Weight: 63 kg

DRUGS (11)
  1. PRIALT [Suspect]
     Indication: SCIATICA
     Dosage: SEE IMAGE
     Route: 037
     Dates: start: 20080715, end: 20080101
  2. PRIALT [Suspect]
     Indication: SCIATICA
     Dosage: SEE IMAGE
     Route: 037
     Dates: start: 20080424, end: 20080502
  3. PRIALT [Suspect]
     Indication: SCIATICA
     Dosage: SEE IMAGE
     Route: 037
     Dates: start: 20080502, end: 20080515
  4. PRIALT [Suspect]
     Indication: SCIATICA
     Dosage: SEE IMAGE
     Route: 037
     Dates: start: 20080515, end: 20080527
  5. PRIALT [Suspect]
     Indication: SCIATICA
     Dosage: SEE IMAGE
     Route: 037
     Dates: start: 20080527, end: 20080626
  6. PRIALT [Suspect]
     Indication: SCIATICA
     Dosage: SEE IMAGE
     Route: 037
     Dates: start: 20080626, end: 20080715
  7. PRIALT [Suspect]
     Indication: SCIATICA
     Dosage: SEE IMAGE
     Route: 037
     Dates: start: 20080101, end: 20081117
  8. PRIALT [Suspect]
     Indication: SCIATICA
     Dosage: SEE IMAGE
     Route: 037
     Dates: start: 20081117
  9. LAXOBERAL (SODIUM PICOSULFATE) [Concomitant]
  10. ARCOXIA [Concomitant]
  11. MORPHINE [Concomitant]

REACTIONS (7)
  - ANGINA PECTORIS [None]
  - ANXIETY [None]
  - BREAST DISORDER [None]
  - FEELING ABNORMAL [None]
  - NAUSEA [None]
  - SPEECH DISORDER [None]
  - TACHYCARDIA [None]
